FAERS Safety Report 25671539 (Version 2)
Quarter: 2025Q3

REPORT INFORMATION
  Report Type: Spontaneous
  Country: GB (occurrence: GB)
  Receive Date: 20250812
  Receipt Date: 20250820
  Transmission Date: 20251021
  Serious: Yes (Hospitalization)
  Sender: TEVA
  Company Number: GB-TEVA-VS-3360870

PATIENT
  Age: 52 Year
  Sex: Male

DRUGS (4)
  1. TESTOSTERONE [Suspect]
     Active Substance: TESTOSTERONE
     Indication: Product used for unknown indication
     Route: 030
  2. Cabotegravir Rilpivirine [Concomitant]
     Indication: HIV infection
     Route: 048
  3. RILPIVIRINE [Suspect]
     Active Substance: RILPIVIRINE
     Indication: HIV infection
     Route: 030
  4. CABOTEGRAVIR [Suspect]
     Active Substance: CABOTEGRAVIR
     Indication: HIV infection
     Route: 030

REACTIONS (3)
  - Skin necrosis [Recovering/Resolving]
  - Intentional product misuse [Unknown]
  - Injection site reaction [Recovering/Resolving]
